FAERS Safety Report 26066327 (Version 1)
Quarter: 2025Q4

REPORT INFORMATION
  Report Type: Spontaneous
  Country: TH (occurrence: TH)
  Receive Date: 20251119
  Receipt Date: 20251119
  Transmission Date: 20260117
  Serious: Yes (Death, Other)
  Sender: B. BRAUN MEDICAL INC.
  Company Number: TH-B. Braun Medical Inc.-TH-BBM-202504413

PATIENT
  Age: 70 Year
  Sex: Male

DRUGS (2)
  1. LIDOCAINE [Suspect]
     Active Substance: LIDOCAINE
     Indication: Local anaesthesia
  2. FAT EMULSION NOS [Concomitant]
     Active Substance: EGG PHOSPHOLIPIDS\SAFFLOWER OIL\SOYBEAN OIL

REACTIONS (4)
  - Cardiac arrest [Fatal]
  - Medication error [Fatal]
  - Local anaesthetic systemic toxicity [Fatal]
  - Seizure [Fatal]
